FAERS Safety Report 20778836 (Version 2)
Quarter: 2022Q2

REPORT INFORMATION
  Report Type: Spontaneous
  Country: GB (occurrence: GB)
  Receive Date: 20220503
  Receipt Date: 20220509
  Transmission Date: 20220721
  Serious: Yes (Other)
  Sender: FDA-Public Use
  Company Number: GB-GSKCCFEMEA-Case-01433791_AE-55362

PATIENT
  Age: 61 Year
  Sex: Male

DRUGS (5)
  1. TICAGRELOR [Suspect]
     Active Substance: TICAGRELOR
     Indication: Product used for unknown indication
     Dosage: UNK
  2. INTEGRILIN [Suspect]
     Active Substance: EPTIFIBATIDE
     Indication: Product used for unknown indication
     Dosage: 100 MILLILITER
  3. INTEGRILIN [Suspect]
     Active Substance: EPTIFIBATIDE
     Dosage: 0.75 MILLIGRAM PER MILLILITRE
  4. INTEGRILIN [Suspect]
     Active Substance: EPTIFIBATIDE
     Dosage: 0.75 MILLIGRAM PER MILLILITRE
  5. COVID-19 VACCINE NOS [Suspect]
     Active Substance: COVID-19 VACCINE NOS
     Indication: COVID-19 prophylaxis
     Dosage: UNK

REACTIONS (2)
  - Vomiting [Unknown]
  - Haematemesis [Unknown]

NARRATIVE: CASE EVENT DATE: 20220217
